FAERS Safety Report 5195497-6 (Version None)
Quarter: 2006Q4

REPORT INFORMATION
  Report Type: 
  Country: None (occurrence: None)
  Receive Date: 20061226
  Receipt Date: 20061226
  Transmission Date: 20070319
  Serious: Yes (Other)
  Sender: FDA-Public Use
  Company Number: None

PATIENT
  Age: 37 Year
  Sex: Male
  Weight: 88.4514 kg

DRUGS (2)
  1. ZICAM MATRIXX INITIATIVES [Suspect]
     Indication: NASOPHARYNGITIS
     Dosage: ONE SQUIRT IN EACH NOSTRAL  USED ONCE  NASAL
     Route: 045
     Dates: start: 20061224, end: 20061224
  2. ZICAM MATRIXX INITIATIVES [Suspect]
     Indication: PROPHYLAXIS
     Dosage: ONE SQUIRT IN EACH NOSTRAL  USED ONCE  NASAL
     Route: 045
     Dates: start: 20061224, end: 20061224

REACTIONS (3)
  - AGEUSIA [None]
  - ANOSMIA [None]
  - BURNING SENSATION [None]
